FAERS Safety Report 10085909 (Version 1)
Quarter: 2014Q2

REPORT INFORMATION
  Report Type: Spontaneous
  Country: FR (occurrence: None)
  Receive Date: 20140416
  Receipt Date: 20140416
  Transmission Date: 20141212
  Serious: Yes (Death, Hospitalization)
  Sender: FDA-Public Use
  Company Number: FR 2009 0001

PATIENT
  Age: 72 Year
  Sex: Male
  Weight: 57 kg

DRUGS (15)
  1. GADOTERIC ACID [Suspect]
     Indication: NUCLEAR MAGNETIC RESONANCE IMAGING
     Route: 042
     Dates: start: 20081113, end: 20081113
  2. AUGMENTIN [Concomitant]
  3. GLYCERYL TRINITRATE [Concomitant]
  4. PLAVIX (CLOPIDOGREL BISULFATE) (CLOPIDOGREL BISULFATE) [Concomitant]
  5. KARDEGIC [Concomitant]
  6. SERETID [Concomitant]
  7. INEXIUM [Concomitant]
  8. IMOVANE [Concomitant]
  9. CARDENSIEL [Concomitant]
  10. DIFFU K [Concomitant]
  11. COVERSYL [Concomitant]
  12. LASILIX (FUROSEMIDE) (FUROSEMIDE) [Concomitant]
  13. NOVOMIX [Concomitant]
  14. CRESTOR [Concomitant]
  15. GADOTERIC ACID [Suspect]
     Route: 042
     Dates: start: 20081113, end: 20081113

REACTIONS (5)
  - Cardiac failure [None]
  - Pleurisy [None]
  - Pneumothorax [None]
  - Cardio-respiratory arrest [None]
  - Overdose [None]
